FAERS Safety Report 26199052 (Version 1)
Quarter: 2025Q4

REPORT INFORMATION
  Report Type: Spontaneous
  Country: US (occurrence: US)
  Receive Date: 20251225
  Receipt Date: 20251225
  Transmission Date: 20260117
  Serious: Yes (Other)
  Sender: SANOFI AVENTIS
  Company Number: US-SA-2025SA378128

PATIENT
  Age: 67 Year
  Sex: Female
  Weight: 55 kg

DRUGS (11)
  1. TAXOTERE [Suspect]
     Active Substance: DOCETAXEL
     Dosage: UNK
  2. TYVASO DPI [Suspect]
     Active Substance: TREPROSTINIL
     Indication: Pulmonary arterial hypertension
     Dosage: 64 UG, QID
     Route: 055
     Dates: start: 20240701, end: 2025
  3. TYVASO DPI [Suspect]
     Active Substance: TREPROSTINIL
     Dosage: UNK UNK, TID
  4. ADEMPAS [Suspect]
     Active Substance: RIOCIGUAT
     Dosage: UNK
  5. VITAMIN D2 [Concomitant]
     Active Substance: ERGOCALCIFEROL
     Dosage: UNK
  6. ELIQUIS [Concomitant]
     Active Substance: APIXABAN
     Dosage: UNK
  7. O PUR OXYGEN [Concomitant]
     Dosage: UNK
  8. OMEPRAZOLE [Concomitant]
     Active Substance: OMEPRAZOLE
     Dosage: UNK
  9. OPSUMIT [Concomitant]
     Active Substance: MACITENTAN
     Dosage: UNK
  10. ENHERTU [Concomitant]
     Active Substance: FAM-TRASTUZUMAB DERUXTECAN-NXKI
     Dosage: UNK
  11. ELACESTRANT [Concomitant]
     Active Substance: ELACESTRANT
     Dosage: UNK

REACTIONS (13)
  - Breast cancer metastatic [Unknown]
  - Anaphylactic reaction [Unknown]
  - Weight decreased [Unknown]
  - Implant site pain [Unknown]
  - Retching [Unknown]
  - Illness [Unknown]
  - Nausea [Unknown]
  - Diarrhoea [Unknown]
  - Eczema [Unknown]
  - Cough [Unknown]
  - White blood cell count decreased [Unknown]
  - Treatment noncompliance [Unknown]
  - Inappropriate schedule of product administration [Unknown]

NARRATIVE: CASE EVENT DATE: 20240101
